FAERS Safety Report 8418492-X (Version None)
Quarter: 2012Q2

REPORT INFORMATION
  Report Type: 
  Country: None (occurrence: None)
  Receive Date: 20120607
  Receipt Date: 20120530
  Transmission Date: 20120825
  Serious: Yes (Life-Threatening)
  Sender: FDA-Public Use
  Company Number: JP-CELGENEUS-087-50794-12060566

PATIENT
  Age: 73 Year

DRUGS (1)
  1. VIDAZA [Suspect]
     Route: 050
     Dates: start: 20120411

REACTIONS (1)
  - PNEUMONIA [None]
